FAERS Safety Report 14351874 (Version 3)
Quarter: 2018Q1

REPORT INFORMATION
  Report Type: Report from Study
  Country: US (occurrence: US)
  Receive Date: 20180104
  Receipt Date: 20180125
  Transmission Date: 20180509
  Serious: Yes (Hospitalization, Other)
  Sender: FDA-Public Use
  Company Number: US-AMGEN-USASL2017182269

PATIENT
  Age: 70 Year
  Sex: Female
  Weight: 91.16 kg

DRUGS (1)
  1. REPATHA [Suspect]
     Active Substance: EVOLOCUMAB
     Indication: HYPERCHOLESTEROLAEMIA
     Dosage: 140 MG, Q2WK
     Route: 058
     Dates: start: 20171011, end: 20171110

REACTIONS (8)
  - Cough [Unknown]
  - Rheumatoid arthritis [Recovering/Resolving]
  - Feeling abnormal [Unknown]
  - Swelling face [Unknown]
  - Lip swelling [Recovered/Resolved]
  - Cerebrospinal fluid leakage [Unknown]
  - Swollen tongue [Recovered/Resolved]
  - Ear swelling [Unknown]

NARRATIVE: CASE EVENT DATE: 2017
